FAERS Safety Report 4961839-7 (Version None)
Quarter: 2006Q1

REPORT INFORMATION
  Report Type: 
  Country: None (occurrence: None)
  Receive Date: 20060329
  Receipt Date: 20060318
  Transmission Date: 20060701
  Serious: Yes (Other)
  Sender: FDA-Public Use
  Company Number: HQWYE411620MAR06

PATIENT
  Age: 88 Year
  Sex: Male

DRUGS (1)
  1. PROMETHAZINE HCL [Suspect]

REACTIONS (3)
  - HYPERSENSITIVITY [None]
  - PARALYSIS [None]
  - SPINAL COLUMN STENOSIS [None]
